FAERS Safety Report 15733130 (Version 1)
Quarter: 2018Q4

REPORT INFORMATION
  Report Type: Spontaneous
  Country: GB (occurrence: GB)
  Receive Date: 20181218
  Receipt Date: 20181218
  Transmission Date: 20190205
  Serious: Yes (Other)
  Sender: FDA-Public Use
  Company Number: GB-TEVA-2018-GB-988071

PATIENT
  Age: 64 Year
  Sex: Male
  Weight: 77 kg

DRUGS (9)
  1. COAL TAR. [Concomitant]
     Active Substance: COAL TAR
     Dosage: USE AS DIRECTED.
     Dates: start: 20180629
  2. METFORMIN [Concomitant]
     Active Substance: METFORMIN HYDROCHLORIDE
     Dosage: 2 DOSAGE FORMS DAILY;
     Dates: start: 20180629
  3. MOMETASONE [Concomitant]
     Active Substance: MOMETASONE
     Dosage: 4 DOSAGE FORMS DAILY; SPRAYS. TO EACH NOSTRIL.
     Route: 045
     Dates: start: 20181026, end: 20181109
  4. LOSARTAN. [Concomitant]
     Active Substance: LOSARTAN
     Dosage: 1 DOSAGE FORMS DAILY;
     Route: 065
     Dates: start: 20181120
  5. ATORVASTATIN [Concomitant]
     Active Substance: ATORVASTATIN
     Indication: HYPERCHOLESTEROLAEMIA
     Dosage: 1 DOSAGE FORMS DAILY; NIGHT.
     Route: 065
     Dates: start: 20180629, end: 20181005
  6. BETNOVATE [Concomitant]
     Active Substance: BETAMETHASONE
     Dosage: USE AS DIRECTED.
     Route: 065
     Dates: start: 20180629
  7. AMOXIL [Concomitant]
     Active Substance: AMOXICILLIN
     Dosage: 3 DOSAGE FORMS DAILY;
     Route: 065
     Dates: start: 20181026, end: 20181102
  8. RAMIPRIL. [Suspect]
     Active Substance: RAMIPRIL
     Indication: ALBUMINURIA
     Dosage: 1.5 MILLIGRAM DAILY;
     Route: 065
     Dates: start: 20181010
  9. CALCIPOTRIOL [Concomitant]
     Active Substance: CALCIPOTRIENE
     Dosage: 1 DOSAGE FORMS DAILY; APPLY.
     Route: 065
     Dates: start: 20180629

REACTIONS (1)
  - Skin exfoliation [Recovered/Resolved]

NARRATIVE: CASE EVENT DATE: 20181120
